FAERS Safety Report 5139308-3 (Version None)
Quarter: 2006Q4

REPORT INFORMATION
  Report Type: 
  Country: None (occurrence: None)
  Receive Date: 20061024
  Receipt Date: 20061016
  Transmission Date: 20070319
  Serious: Yes (Other)
  Sender: FDA-Public Use
  Company Number: 2006SP003277

PATIENT
  Age: 56 Year
  Sex: Female
  Weight: 83.9154 kg

DRUGS (6)
  1. ALBUTEROL SULFATE [Suspect]
     Indication: ASTHMA
     Dosage: 2 DF;QID; INH
     Route: 055
  2. LIPITOR (CON.) [Concomitant]
  3. METOPROLOL (CON.) [Concomitant]
  4. SINGULAIR (CON.) [Concomitant]
  5. HYDROCHLOROTHIAZIDE (CON.) [Concomitant]
  6. CLONIDINE (CON.) [Concomitant]

REACTIONS (3)
  - CATARACT [None]
  - DYSGEUSIA [None]
  - PHARMACEUTICAL PRODUCT COMPLAINT [None]
